FAERS Safety Report 10683899 (Version 2)
Quarter: 2015Q2

REPORT INFORMATION
  Report Type: Spontaneous
  Country: US (occurrence: US)
  Receive Date: 20141230
  Receipt Date: 20150506
  Transmission Date: 20150821
  Serious: Yes (Hospitalization)
  Sender: FDA-Public Use
  Company Number: US-ALLERGAN-1426274US

PATIENT
  Age: 74 Year
  Sex: Female

DRUGS (2)
  1. ASPIRIN. [Concomitant]
     Active Substance: ASPIRIN
     Indication: ANXIETY
     Dosage: UNK
  2. REFRESH OPTIVE [Suspect]
     Active Substance: CARBOXYMETHYLCELLULOSE SODIUM\GLYCERIN
     Indication: PRODUCT USED FOR UNKNOWN INDICATION
     Dosage: 2 GTT, UNK
     Route: 047
     Dates: start: 20140610, end: 2014

REACTIONS (9)
  - Concussion [Unknown]
  - Emotional disorder [Unknown]
  - Laceration [Unknown]
  - Visual impairment [Unknown]
  - Nervous system disorder [Unknown]
  - Dizziness [Recovered/Resolved]
  - Fall [Recovered/Resolved]
  - Hearing impaired [Unknown]
  - Head injury [Unknown]

NARRATIVE: CASE EVENT DATE: 20140610
